FAERS Safety Report 20310450 (Version 1)
Quarter: 2022Q1

REPORT INFORMATION
  Report Type: Spontaneous
  Country: US (occurrence: US)
  Receive Date: 20220107
  Receipt Date: 20220107
  Transmission Date: 20220423
  Serious: No
  Sender: FDA-Public Use
  Company Number: US-TEVA-2021-US-1995735

PATIENT
  Age: 80 Year
  Sex: Female
  Weight: 56.7 kg

DRUGS (2)
  1. ALBUTEROL SULFATE [Suspect]
     Active Substance: ALBUTEROL SULFATE
     Indication: Wheezing
     Dosage: 1-2 PUFFS EVERY 4-6 HOURS AS NEEDED
     Route: 065
     Dates: start: 20211228
  2. ALBUTEROL SULFATE [Suspect]
     Active Substance: ALBUTEROL SULFATE
     Indication: Dyspnoea

REACTIONS (6)
  - Cough [Unknown]
  - Device issue [Unknown]
  - Wrong technique in device usage process [Unknown]
  - Suspected COVID-19 [Unknown]
  - Arthralgia [Unknown]
  - Body height decreased [Unknown]

NARRATIVE: CASE EVENT DATE: 20211201
